FAERS Safety Report 6385827-1 (Version None)
Quarter: 2009Q3

REPORT INFORMATION
  Report Type: 
  Country: None (occurrence: None)
  Receive Date: 20090929
  Receipt Date: 20090605
  Transmission Date: 20100115
  Serious: Yes (Other)
  Sender: FDA-Public Use
  Company Number: LMI-2009-00139

PATIENT
  Sex: Male
  Weight: 56.246 kg

DRUGS (7)
  1. DEFINITY [Suspect]
     Indication: DYSPNOEA
     Dosage: .8 ML OF DEFINITY DILUTED IN 29 ML OF NORMAL SALINE (ML), INTRAVENOUS
     Route: 042
     Dates: start: 20090605, end: 20090605
  2. DEFINITY [Suspect]
     Indication: STRESS ECHOCARDIOGRAM
     Dosage: .8 ML OF DEFINITY DILUTED IN 29 ML OF NORMAL SALINE (ML), INTRAVENOUS
     Route: 042
     Dates: start: 20090605, end: 20090605
  3. ASPIRIN [Concomitant]
  4. PLAVIX [Concomitant]
  5. METOPROLOL (METOPROLOL) [Concomitant]
  6. LISINOPRIL [Concomitant]
  7. LIPID AGENT (LIPID MODIFYING AGENTS) [Concomitant]

REACTIONS (6)
  - ANXIETY [None]
  - DYSPNOEA [None]
  - HYPOAESTHESIA FACIAL [None]
  - LOCAL SWELLING [None]
  - OROPHARYNGEAL PAIN [None]
  - STRIDOR [None]
